FAERS Safety Report 8536989-9 (Version None)
Quarter: 2012Q3

REPORT INFORMATION
  Report Type: 
  Country: None (occurrence: None)
  Receive Date: 20120725
  Receipt Date: 20120716
  Transmission Date: 20120928
  Serious: Yes (Hospitalization)
  Sender: FDA-Public Use
  Company Number: KR-B.I. PHARMACEUTICALS,INC./RIDGEFIELD-2012-BP-16283YA

PATIENT
  Sex: Male
  Weight: 66.7 kg

DRUGS (5)
  1. FINASTERIDE/PLACEBO TABLET [Suspect]
     Route: 048
  2. COZARTAN (LOSARTAN POTASSIUM) [Concomitant]
     Dates: start: 20100401
  3. TAMSULOSIN HCL [Suspect]
     Indication: BENIGN PROSTATIC HYPERPLASIA
     Route: 048
     Dates: start: 20120412
  4. ASPIRIN [Concomitant]
     Dates: start: 20100401
  5. TAMSULOSIN HCL [Suspect]
     Indication: LOWER URINARY TRACT SYMPTOMS

REACTIONS (2)
  - RECTAL POLYP [None]
  - ADENOCARCINOMA [None]
